FAERS Safety Report 5754692-5 (Version None)
Quarter: 2008Q2

REPORT INFORMATION
  Report Type: 
  Country: None (occurrence: None)
  Receive Date: 20080530
  Receipt Date: 20080523
  Transmission Date: 20081010
  Serious: Yes (Other)
  Sender: FDA-Public Use
  Company Number: NL-GENENTECH-261778

PATIENT

DRUGS (2)
  1. PULMOZYME [Suspect]
     Indication: ASTHMA
     Dosage: 5 MG, UNK
     Route: 050
  2. BRONCHODILATORS [Concomitant]
     Indication: DRUG USE FOR UNKNOWN INDICATION

REACTIONS (1)
  - OXYGEN SATURATION DECREASED [None]
